FAERS Safety Report 4631389-6 (Version None)
Quarter: 2005Q2

REPORT INFORMATION
  Report Type: 
  Country: None (occurrence: None)
  Receive Date: 20050407
  Receipt Date: 20050324
  Transmission Date: 20051028
  Serious: Yes (Hospitalization, Other)
  Sender: FDA-Public Use
  Company Number: USA-2003-0005508

PATIENT
  Age: 42 Year
  Sex: Female
  Weight: 88 kg

DRUGS (52)
  1. OXYCONTIN [Suspect]
     Indication: PAIN
     Dosage: SEE IMAGE
     Route: 048
     Dates: start: 19970917, end: 19990720
  2. OXYCONTIN [Suspect]
     Indication: PAIN
     Dosage: SEE IMAGE
     Route: 048
     Dates: start: 19990720, end: 20000501
  3. OXYCONTIN [Suspect]
     Indication: PAIN
     Dosage: SEE IMAGE
     Route: 048
     Dates: start: 19980824
  4. OXYIR CAPSULES (OXYCODONE HYDROCHLORIDE) IR CAPSULE [Concomitant]
  5. SENLOKOT (SENNOSIDE A+B) [Concomitant]
  6. GUAIFENEX (PHENYLEPHRINE HYDROCHLORIDE, PHENYLPROPANOLAMINE HYDROCHLOR [Concomitant]
  7. CECLOR [Concomitant]
  8. ZITHROMAX [Concomitant]
  9. NEURONTIN [Concomitant]
  10. SEROQUEL [Concomitant]
  11. CEPHALEXIN [Concomitant]
  12. AMITRIPTYLINE HCL [Concomitant]
  13. VALIUM [Concomitant]
  14. CEFZIL [Concomitant]
  15. TYLOX (OXYCODONE TEREPHATHALATE) [Concomitant]
  16. BENADRYL [Concomitant]
  17. WELLBUTRIN-SLOW RELEASE (AMFEBUAMONE HYDROCHLORIDE0 [Concomitant]
  18. BACLOFEN [Concomitant]
  19. ZIAC [Concomitant]
  20. BETHANECHOL (BETHANECHOL) [Concomitant]
  21. SULFAMETHOXAZOLE [Concomitant]
  22. HALOTUSSIN [Concomitant]
  23. MAGONATE (MAGNESIUM GLUCONATE) [Concomitant]
  24. PREMARIN [Concomitant]
  25. EFFEXOR [Concomitant]
  26. DFEFLAZACORT (DEFLAZACORT) [Concomitant]
  27. CLARITIN [Concomitant]
  28. NORCO [Concomitant]
  29. FLEXERIL [Concomitant]
  30. ELAVIL [Concomitant]
  31. DAYPRO [Concomitant]
  32. DOXYCYCLINE [Concomitant]
  33. KLONOPIN [Concomitant]
  34. PROZAC [Concomitant]
  35. RISPERDAL [Concomitant]
  36. TEGRETOL [Concomitant]
  37. VICODIN [Concomitant]
  38. SERZONE [Concomitant]
  39. ARTHROTEC [Concomitant]
  40. FLOVENT [Concomitant]
  41. VOLTAREN [Concomitant]
  42. CYTOTEC [Concomitant]
  43. IBUPROFEN [Concomitant]
  44. AUGMENTIN '125' [Concomitant]
  45. MAXICORT (CORTICOSTEROID NOS) [Concomitant]
  46. DESYREL [Concomitant]
  47. TRAZADONE (TRAZODONE) [Concomitant]
  48. AZMACORT [Concomitant]
  49. ALDACTAZIDE (SPIRONOLACTONE, HYDROCHLOROTHIAZIDE) [Concomitant]
  50. ROXILOX [Concomitant]
  51. OSCAL (CALCIUM CARBONATE) [Concomitant]
  52. REMERON [Concomitant]

REACTIONS (85)
  - AFFECTIVE DISORDER [None]
  - ANXIETY [None]
  - APATHY [None]
  - ARTHRALGIA [None]
  - ASTHENIA [None]
  - ASTHMA [None]
  - BACK PAIN [None]
  - BREAST CYST [None]
  - BUTTOCK PAIN [None]
  - CARPAL TUNNEL SYNDROME [None]
  - CHILLS [None]
  - COMA [None]
  - CONDITION AGGRAVATED [None]
  - CONFUSIONAL STATE [None]
  - CRYING [None]
  - CYSTOCELE [None]
  - DISEASE RECURRENCE [None]
  - DISTURBANCE IN ATTENTION [None]
  - DIZZINESS [None]
  - DRUG ABUSER [None]
  - DRUG INTOLERANCE [None]
  - DRUG WITHDRAWAL SYNDROME [None]
  - DRY MOUTH [None]
  - DYSARTHRIA [None]
  - DYSKINESIA [None]
  - DYSPAREUNIA [None]
  - DYSPHONIA [None]
  - DYSPNOEA [None]
  - DYSURIA [None]
  - EAR PAIN [None]
  - EMOTIONAL DISTRESS [None]
  - EXCORIATION [None]
  - EXOSTOSIS [None]
  - EYE DISORDER [None]
  - FAECAL INCONTINENCE [None]
  - FALL [None]
  - FATIGUE [None]
  - FEELING ABNORMAL [None]
  - FEELING OF DESPAIR [None]
  - FUNGAL INFECTION [None]
  - GASTROENTERITIS [None]
  - HEAD INJURY [None]
  - HEADACHE [None]
  - HOT FLUSH [None]
  - HYPERHIDROSIS [None]
  - HYPOAESTHESIA [None]
  - INADEQUATE ANALGESIA [None]
  - JOINT STIFFNESS [None]
  - JOINT SWELLING [None]
  - LOSS OF CONSCIOUSNESS [None]
  - MALAISE [None]
  - MEMORY IMPAIRMENT [None]
  - MOOD SWINGS [None]
  - MUSCLE SPASMS [None]
  - MUSCULOSKELETAL STIFFNESS [None]
  - NAUSEA [None]
  - NERVOUSNESS [None]
  - OEDEMA PERIPHERAL [None]
  - PAIN IN EXTREMITY [None]
  - PANIC ATTACK [None]
  - POLYDIPSIA [None]
  - POLYSUBSTANCE ABUSE [None]
  - PYREXIA [None]
  - RETCHING [None]
  - ROAD TRAFFIC ACCIDENT [None]
  - SEDATION [None]
  - SINUSITIS [None]
  - SKIN FISSURES [None]
  - SLEEP WALKING [None]
  - SOMNOLENCE [None]
  - SPEECH DISORDER [None]
  - SYNCOPE [None]
  - TEARFULNESS [None]
  - TENDONITIS [None]
  - THINKING ABNORMAL [None]
  - TINNITUS [None]
  - TREMOR [None]
  - URINARY RETENTION [None]
  - URINARY TRACT INFECTION [None]
  - VAGINAL INFECTION [None]
  - VERTIGO [None]
  - VOMITING [None]
  - VULVAL DISORDER [None]
  - WEIGHT INCREASED [None]
  - WOUND DEHISCENCE [None]
